FAERS Safety Report 18307277 (Version 1)
Quarter: 2020Q3

REPORT INFORMATION
  Report Type: Spontaneous
  Country: US (occurrence: US)
  Receive Date: 20200924
  Receipt Date: 20200924
  Transmission Date: 20201103
  Serious: No
  Sender: FDA-Public Use
  Company Number: US-VERTEX PHARMACEUTICALS-2020-018794

PATIENT
  Sex: Female
  Weight: 55 kg

DRUGS (15)
  1. HUMALOG [Concomitant]
     Active Substance: INSULIN LISPRO
     Dosage: 100/MILLILITER
  2. MONTELUKAST SODIUM. [Concomitant]
     Active Substance: MONTELUKAST SODIUM
  3. CYPROHEPTADINE HCL [Concomitant]
     Active Substance: CYPROHEPTADINE HYDROCHLORIDE
     Dosage: 4 MG
  4. COLACE [Concomitant]
     Active Substance: DOCUSATE SODIUM
  5. PATANASE [Concomitant]
     Active Substance: OLOPATADINE HYDROCHLORIDE
  6. CREON [Concomitant]
     Active Substance: PANCRELIPASE AMYLASE\PANCRELIPASE LIPASE\PANCRELIPASE PROTEASE
  7. TRIKAFTA [Suspect]
     Active Substance: ELEXACAFTOR\IVACAFTOR\TEZACAFTOR
     Indication: CYSTIC FIBROSIS
     Dosage: 2 ORANGE TABS (100 MG ELEXA/ 50 MG TEZA/ 75 MG IVA) IN AM AND 1 BLUE TAB (150 MG IVA) IN PM
     Route: 048
     Dates: start: 2020
  8. BASAGLAR [Concomitant]
     Active Substance: INSULIN GLARGINE
  9. SYMBICORT [Concomitant]
     Active Substance: BUDESONIDE\FORMOTEROL FUMARATE DIHYDRATE
     Dosage: 160?4.5 MICROGRAM
  10. PULMOZYME [Concomitant]
     Active Substance: DORNASE ALFA
  11. ZYRTEC [Concomitant]
     Active Substance: CETIRIZINE HYDROCHLORIDE
  12. PROAIR HFA [Concomitant]
     Active Substance: ALBUTEROL SULFATE
  13. MIRALAX [Concomitant]
     Active Substance: POLYETHYLENE GLYCOL 3350
  14. CLARITIN [CLARITHROMYCIN] [Concomitant]
     Active Substance: CLARITHROMYCIN
  15. PREVACID 24 HR [Concomitant]
     Active Substance: LANSOPRAZOLE

REACTIONS (3)
  - Nausea [Not Recovered/Not Resolved]
  - Decreased appetite [Not Recovered/Not Resolved]
  - Somnolence [Not Recovered/Not Resolved]

NARRATIVE: CASE EVENT DATE: 2020
